FAERS Safety Report 21408647 (Version 1)
Quarter: 2022Q4

REPORT INFORMATION
  Report Type: Spontaneous
  Country: US (occurrence: US)
  Receive Date: 20221004
  Receipt Date: 20221004
  Transmission Date: 20230112
  Serious: No
  Sender: FDA-Public Use
  Company Number: US-AMNEAL PHARMACEUTICALS-2022-AMRX-00156

PATIENT
  Sex: Female
  Weight: 58.957 kg

DRUGS (2)
  1. FLUOCINONIDE [Suspect]
     Active Substance: FLUOCINONIDE
     Indication: Rash
     Dosage: UNK
     Route: 061
     Dates: start: 202110
  2. FLUOCINONIDE [Suspect]
     Active Substance: FLUOCINONIDE
     Dosage: TWICE A DAY FOR 2 WEEKS
     Route: 061
     Dates: start: 202201

REACTIONS (6)
  - Therapeutic product effect variable [Not Recovered/Not Resolved]
  - Dermatitis allergic [Not Recovered/Not Resolved]
  - Application site pain [Not Recovered/Not Resolved]
  - Application site pruritus [Not Recovered/Not Resolved]
  - Application site irritation [Not Recovered/Not Resolved]
  - Application site dryness [Not Recovered/Not Resolved]

NARRATIVE: CASE EVENT DATE: 20210101
